FAERS Safety Report 15966427 (Version 2)
Quarter: 2019Q1

REPORT INFORMATION
  Report Type: Spontaneous
  Country: TR (occurrence: TR)
  Receive Date: 20190215
  Receipt Date: 20190224
  Transmission Date: 20190418
  Serious: Yes (Other)
  Sender: FDA-Public Use
  Company Number: PHHY2019TR027833

PATIENT
  Sex: Male
  Weight: 75 kg

DRUGS (3)
  1. FINGYA [Suspect]
     Active Substance: FINGOLIMOD
     Indication: MULTIPLE SCLEROSIS
     Dosage: 0.5 MG, QD
     Route: 048
     Dates: end: 20190202
  2. FAMPYRA [Concomitant]
     Active Substance: DALFAMPRIDINE
     Indication: PRODUCT USED FOR UNKNOWN INDICATION
     Route: 065
  3. LIORESAL [Concomitant]
     Active Substance: BACLOFEN
     Indication: PRODUCT USED FOR UNKNOWN INDICATION
     Route: 065

REACTIONS (9)
  - Altered state of consciousness [Unknown]
  - Epilepsy [Unknown]
  - Pyrexia [Unknown]
  - Progressive multifocal leukoencephalopathy [Unknown]
  - Headache [Unknown]
  - Cognitive disorder [Unknown]
  - Encephalitis [Unknown]
  - Personality change [Unknown]
  - Aphasia [Unknown]
